FAERS Safety Report 25626810 (Version 1)
Quarter: 2025Q3

REPORT INFORMATION
  Report Type: Spontaneous
  Country: US (occurrence: None)
  Receive Date: 20250730
  Receipt Date: 20250730
  Transmission Date: 20251020
  Serious: Yes (Other)
  Sender: FDA-CTU
  Company Number: None

PATIENT
  Age: 92 Year
  Sex: Male

DRUGS (1)
  1. LENALIDOMIDE [Suspect]
     Active Substance: LENALIDOMIDE
     Indication: Plasma cell myeloma
     Dosage: FREQUENCY : DAILY;?
     Route: 048
     Dates: start: 20250604, end: 20250729

REACTIONS (6)
  - Drug intolerance [None]
  - Decreased appetite [None]
  - Candida infection [None]
  - Weight decreased [None]
  - Oedema [None]
  - Hypoalbuminaemia [None]

NARRATIVE: CASE EVENT DATE: 20250729
